FAERS Safety Report 12083129 (Version 2)
Quarter: 2016Q2

REPORT INFORMATION
  Report Type: Other
  Country: US (occurrence: US)
  Receive Date: 20160217
  Receipt Date: 20160414
  Transmission Date: 20160815
  Serious: Yes (Other)
  Sender: FDA-Public Use
  Company Number: US-ACORDA-ACO_121293_2016

PATIENT

DRUGS (1)
  1. AMPYRA [Suspect]
     Active Substance: DALFAMPRIDINE
     Indication: PRODUCT USED FOR UNKNOWN INDICATION
     Dosage: UNK
     Route: 065

REACTIONS (7)
  - Eye movement disorder [Unknown]
  - Fall [Unknown]
  - Therapy cessation [Unknown]
  - Visual acuity reduced [Unknown]
  - Mobility decreased [Unknown]
  - Gait disturbance [Unknown]
  - Brain injury [Unknown]
